FAERS Safety Report 7629281-8 (Version None)
Quarter: 2011Q3

REPORT INFORMATION
  Report Type: 
  Country: None (occurrence: None)
  Receive Date: 20110722
  Receipt Date: 20110712
  Transmission Date: 20111222
  Serious: Yes (Hospitalization, Other)
  Sender: FDA-Public Use
  Company Number: PHHY2011DE62312

PATIENT
  Sex: Female
  Weight: 68 kg

DRUGS (5)
  1. CORTISONE ACETATE [Concomitant]
     Indication: ASTHMA
     Dosage: 15 MG
     Route: 048
     Dates: start: 20000201
  2. CALCIUM CARBONATE [Concomitant]
     Indication: OSTEOPOROSIS
     Dosage: 1000 MG, DAILY
  3. VITAMIN D [Concomitant]
     Indication: OSTEOPOROSIS
     Dosage: 3000 IU, DAILY
  4. ZOLEDRONOC ACID [Suspect]
     Dosage: 5 MG ONCE YEARLY
     Route: 042
     Dates: start: 20100322, end: 20100322
  5. DICLOFENAC [Concomitant]
     Indication: PAIN
     Dosage: 2 DF, QD

REACTIONS (3)
  - DRUG EFFECT DECREASED [None]
  - LUMBAR VERTEBRAL FRACTURE [None]
  - CONDITION AGGRAVATED [None]
